FAERS Safety Report 7405582-3 (Version None)
Quarter: 2011Q2

REPORT INFORMATION
  Report Type: 
  Country: None (occurrence: None)
  Receive Date: 20110411
  Receipt Date: 20110328
  Transmission Date: 20111010
  Serious: Yes (Other)
  Sender: FDA-Public Use
  Company Number: PHHY2011JP22294

PATIENT

DRUGS (1)
  1. CARBAMAZEPINE [Suspect]
     Indication: TEMPORAL LOBE EPILEPSY
     Route: 048

REACTIONS (2)
  - ERYTHEMA [None]
  - SWELLING FACE [None]
